FAERS Safety Report 8022692-0 (Version None)
Quarter: 2012Q1

REPORT INFORMATION
  Report Type: 
  Country: None (occurrence: None)
  Receive Date: 20120104
  Receipt Date: 20111226
  Transmission Date: 20120608
  Serious: Yes (Other)
  Sender: FDA-Public Use
  Company Number: FR-ABBOTT-11P-056-0887549-00

PATIENT
  Sex: Male

DRUGS (4)
  1. NORVIR [Suspect]
     Route: 048
     Dates: start: 20110418
  2. NORVIR [Suspect]
     Indication: PRODUCT USED FOR UNKNOWN INDICATION
     Route: 048
     Dates: start: 20070101, end: 20070101
  3. PREZISTA [Suspect]
     Indication: PRODUCT USED FOR UNKNOWN INDICATION
     Route: 048
     Dates: start: 20080418
  4. RALTEGRAVIR [Suspect]
     Indication: PRODUCT USED FOR UNKNOWN INDICATION
     Route: 048
     Dates: start: 20080418

REACTIONS (4)
  - DEPRESSION [None]
  - SUICIDAL IDEATION [None]
  - NO THERAPEUTIC RESPONSE [None]
  - ENCEPHALITIS MENINGOCOCCAL [None]
